FAERS Safety Report 5005939-4 (Version None)
Quarter: 2006Q2

REPORT INFORMATION
  Report Type: 
  Country: None (occurrence: None)
  Receive Date: 20060517
  Receipt Date: 20060517
  Transmission Date: 20061013
  Serious: Yes (Hospitalization)
  Sender: FDA-Public Use
  Company Number: None

PATIENT
  Sex: Male

DRUGS (12)
  1. ROSIGLITAZONE [Suspect]
     Indication: DIABETES MELLITUS
     Dosage: 8 MG DAILY PO
     Route: 048
     Dates: start: 20051103, end: 20051119
  2. GLIPIZIDE [Concomitant]
  3. FELODIPINE [Concomitant]
  4. SIMVASTATIN [Concomitant]
  5. OXYCODONE AND ACETAMINOPHEN [Concomitant]
  6. INSULIN [Concomitant]
  7. ATENOLOL [Concomitant]
  8. DOCUSATE [Concomitant]
  9. FERROUS SULFATE TAB [Concomitant]
  10. OMEPRAZOLE [Concomitant]
  11. TERAZOSIN HCL [Concomitant]
  12. AMPICILLIN SODIUM/SULBACTAM SODIUM [Concomitant]

REACTIONS (3)
  - CARDIAC FAILURE CONGESTIVE [None]
  - CONDITION AGGRAVATED [None]
  - FLUID OVERLOAD [None]
